FAERS Safety Report 20253180 (Version 4)
Quarter: 2022Q2

REPORT INFORMATION
  Report Type: Report from Study
  Country: FR (occurrence: FR)
  Receive Date: 20211229
  Receipt Date: 20220412
  Transmission Date: 20220721
  Serious: Yes (Death, Life-Threatening, Hospitalization, Other)
  Sender: FDA-Public Use
  Company Number: FR-BRISTOL-MYERS SQUIBB COMPANY-BMS-2021-103880

PATIENT
  Age: 53 Year
  Sex: Male
  Weight: 70 kg

DRUGS (4)
  1. NIVOLUMAB [Suspect]
     Active Substance: NIVOLUMAB
     Indication: Malignant melanoma
     Dosage: 480 GRAM, Q4WK
     Route: 042
     Dates: start: 20210322, end: 20210913
  2. IPILIMUMAB [Suspect]
     Active Substance: IPILIMUMAB
     Indication: Malignant melanoma
     Dosage: 71 MILLIGRAM, Q3WK
     Route: 042
     Dates: start: 20210322, end: 20210527
  3. ENCORAFENIB [Suspect]
     Active Substance: ENCORAFENIB
     Indication: Malignant melanoma
     Dosage: 450 MILLIGRAM, QD
     Route: 048
     Dates: start: 20201221, end: 20210315
  4. BINIMETINIB [Suspect]
     Active Substance: BINIMETINIB
     Indication: Malignant melanoma
     Dosage: 45 MILLIGRAM, BID
     Route: 048
     Dates: start: 20201221, end: 20210315

REACTIONS (1)
  - Arrhythmia [Fatal]

NARRATIVE: CASE EVENT DATE: 20211005
